FAERS Safety Report 9032139 (Version 2)
Quarter: 2014Q1

REPORT INFORMATION
  Report Type: Report from Study
  Country: GB (occurrence: GB)
  Receive Date: 20130122
  Receipt Date: 20140113
  Transmission Date: 20141002
  Serious: Yes (Other)
  Sender: FDA-Public Use
  Company Number: GB-009507513-1301GBR007261

PATIENT
  Age: 79 Year
  Sex: Female
  Weight: 73.4 kg

DRUGS (4)
  1. ALENDRONATE SODIUM [Suspect]
     Indication: OSTEOPOROSIS
     Dosage: UNK, QW
     Route: 048
     Dates: start: 20050920
  2. MK-0000 (281) [Suspect]
  3. CALCIUM (UNSPECIFIED) (+) ERGOCALCIFEROL [Suspect]
     Indication: OSTEOPOROSIS
     Dosage: UNK, QD
     Route: 048
     Dates: start: 20071024
  4. OMEPRAZOLE [Suspect]
     Indication: GASTROINTESTINAL DISORDER
     Dosage: UNK, QD
     Dates: start: 20120930

REACTIONS (1)
  - Spinal fracture [Unknown]
